FAERS Safety Report 17963767 (Version 2)
Quarter: 2020Q3

REPORT INFORMATION
  Report Type: Spontaneous
  Country: CN (occurrence: CN)
  Receive Date: 20200630
  Receipt Date: 20200702
  Transmission Date: 20201103
  Serious: Yes (Other)
  Sender: FDA-Public Use
  Company Number: CN-PFIZER INC-2020247039

PATIENT
  Age: 33 Year
  Sex: Female
  Weight: 67 kg

DRUGS (3)
  1. OXYTOCIN. [Concomitant]
     Active Substance: OXYTOCIN
     Indication: UTERINE HYPOTONUS
     Dosage: 20 IU, 1X/DAY
     Route: 041
     Dates: start: 20200618, end: 20200618
  2. NORMAL SALINE [Concomitant]
     Active Substance: SODIUM CHLORIDE
     Dosage: 500 ML
     Dates: start: 20200618, end: 20200618
  3. HEMABATE [Suspect]
     Active Substance: CARBOPROST TROMETHAMINE
     Indication: UTERINE HYPOTONUS
     Dosage: 250 UG, 1X/DAY
     Route: 030
     Dates: start: 20200618, end: 20200618

REACTIONS (3)
  - Dyspnoea [Recovered/Resolved]
  - Throat tightness [Recovered/Resolved]
  - Dysphonia [Recovered/Resolved]

NARRATIVE: CASE EVENT DATE: 20200618
